FAERS Safety Report 10855682 (Version 1)
Quarter: 2015Q1

REPORT INFORMATION
  Report Type: Spontaneous
  Country: US (occurrence: None)
  Receive Date: 20150218
  Receipt Date: 20150218
  Transmission Date: 20150721
  Serious: No
  Sender: FDA-Public Use
  Company Number: None

PATIENT
  Age: 6 Year
  Sex: Female

DRUGS (2)
  1. GRISEOFULVIN. [Suspect]
     Active Substance: GRISEOFULVIN
     Indication: TINEA INFECTION
     Route: 048
     Dates: start: 20150114, end: 20150201
  2. GENERIC BRAND GUMMY VITAMINS [Concomitant]

REACTIONS (3)
  - Rash macular [None]
  - Cough [None]
  - Urticaria [None]

NARRATIVE: CASE EVENT DATE: 20150129
